FAERS Safety Report 8036645-X (Version None)
Quarter: 2012Q1

REPORT INFORMATION
  Report Type: 
  Country: None (occurrence: None)
  Receive Date: 20120111
  Receipt Date: 20120109
  Transmission Date: 20120608
  Serious: Yes (Other)
  Sender: FDA-Public Use
  Company Number: DE-GILEAD-2011-0048235

PATIENT
  Sex: Male

DRUGS (5)
  1. EFFIENT [Concomitant]
     Indication: HIV INFECTION
     Dosage: 10 MG, QD
  2. VIREAD [Suspect]
     Indication: HIV INFECTION
     Dosage: 245 MG, QD
     Dates: start: 20060301
  3. PRAVASTATIN [Concomitant]
     Indication: LIPID METABOLISM DISORDER
     Dosage: 40 MG, QD
  4. BISOPROLOL FUMARATE [Concomitant]
     Indication: HYPERTENSION
     Dosage: 2.5 MG, QD
  5. EPIVIR [Concomitant]
     Indication: HIV INFECTION
     Dosage: 300 MG, QD

REACTIONS (2)
  - POLYCYTHAEMIA VERA [None]
  - PLATELET COUNT INCREASED [None]
